FAERS Safety Report 9713021 (Version 1)
Quarter: 2013Q4

REPORT INFORMATION
  Report Type: Spontaneous
  Country: DK (occurrence: DK)
  Receive Date: 20131126
  Receipt Date: 20131126
  Transmission Date: 20140711
  Serious: Yes (Hospitalization)
  Sender: FDA-Public Use
  Company Number: DK-TEVA-445044ISR

PATIENT
  Age: 86 Year
  Sex: Female

DRUGS (8)
  1. CLOPIDOGREL ^TEVA^ (HYDROGEN SULFATE) [Suspect]
     Indication: THROMBOSIS PROPHYLAXIS
     Dosage: 75 MILLIGRAM DAILY;
     Route: 048
     Dates: start: 20120608, end: 20131010
  2. SIMVASTATIN [Concomitant]
     Indication: CARDIOVASCULAR EVENT PROPHYLAXIS
     Dates: start: 2011
  3. PANTOPRAZOL ^NYCOMED^ [Concomitant]
     Indication: PROPHYLAXIS AGAINST GASTROINTESTINAL ULCER
     Dates: start: 201206
  4. ESCITALOPRAM [Concomitant]
     Indication: DEPRESSION
     Dates: start: 2012
  5. ISOPTIN RETARD [Concomitant]
     Indication: HYPERTENSION
     Dates: start: 2012
  6. CENTYL MED KALIUMKLORID [Concomitant]
     Indication: HYPERTENSION
     Dates: start: 2012
  7. PIPERACILLIN/TAZOBACTAM ^STRAGEN^ [Concomitant]
     Indication: SEPSIS
     Dates: start: 20131010
  8. NOVORAPID FLEXPEN [Concomitant]
     Indication: DIABETES MELLITUS
     Dates: start: 20130930

REACTIONS (6)
  - Anaemia [Recovering/Resolving]
  - Haematemesis [Unknown]
  - Melaena [Unknown]
  - Hydronephrosis [Unknown]
  - Pyonephrosis [Unknown]
  - Calculus urinary [Unknown]
